FAERS Safety Report 21375498 (Version 1)
Quarter: 2022Q3

REPORT INFORMATION
  Report Type: Spontaneous
  Country: MX (occurrence: None)
  Receive Date: 20220922
  Receipt Date: 20220922
  Transmission Date: 20221027
  Serious: No
  Sender: FDA-Public Use
  Company Number: None

PATIENT
  Age: 43 Year
  Sex: Female
  Weight: 58 kg

DRUGS (1)
  1. ACETAMINOPHEN\AMANTADINE\CHLORPHENIRAMINE [Suspect]
     Active Substance: ACETAMINOPHEN\AMANTADINE\CHLORPHENIRAMINE
     Indication: Influenza
     Dosage: FREQUENCY : EVERY 8 HOURS;?
     Route: 048
     Dates: start: 20220917, end: 20220918

REACTIONS (10)
  - Feeling abnormal [None]
  - Dizziness [None]
  - Nausea [None]
  - Hallucination [None]
  - Drug ineffective [None]
  - Product complaint [None]
  - Feeling abnormal [None]
  - Visual impairment [None]
  - Fear [None]
  - Product formulation issue [None]
